FAERS Safety Report 5226126-0 (Version None)
Quarter: 2007Q1

REPORT INFORMATION
  Report Type: 
  Country: None (occurrence: None)
  Receive Date: 20070201
  Receipt Date: 20070126
  Transmission Date: 20070707
  Serious: Yes (Other)
  Sender: FDA-Public Use
  Company Number: JP-GLAXOSMITHKLINE-B0451965A

PATIENT
  Age: 50 Year
  Sex: Female

DRUGS (5)
  1. AUGMENTIN '125' [Suspect]
     Indication: DRUG USE FOR UNKNOWN INDICATION
     Dosage: 250MG THREE TIMES PER DAY
     Route: 048
     Dates: start: 20061215, end: 20061219
  2. LOXONIN [Concomitant]
     Dosage: 180MG PER DAY
     Route: 065
     Dates: start: 20061215, end: 20061219
  3. TRANSAMIN [Concomitant]
     Dosage: 750MG PER DAY
     Route: 065
     Dates: start: 20061215, end: 20061219
  4. DASEN [Concomitant]
     Dosage: 30MG PER DAY
     Route: 048
     Dates: start: 20061215, end: 20061219
  5. GASTER D [Concomitant]
     Dosage: 60MG PER DAY
     Route: 048
     Dates: start: 20061215, end: 20061219

REACTIONS (6)
  - DRUG ERUPTION [None]
  - EYE PAIN [None]
  - FACE OEDEMA [None]
  - PYREXIA [None]
  - RASH GENERALISED [None]
  - RENAL FAILURE ACUTE [None]
